FAERS Safety Report 7620833-8 (Version None)
Quarter: 2011Q3

REPORT INFORMATION
  Report Type: 
  Country: None (occurrence: None)
  Receive Date: 20110719
  Receipt Date: 20110705
  Transmission Date: 20111222
  Serious: Yes (Other)
  Sender: FDA-Public Use
  Company Number: TW-WATSON-2011-10301

PATIENT
  Age: 52 Year
  Sex: Female
  Weight: 47.5 kg

DRUGS (3)
  1. SERTRALINE HYDROCHLORIDE [Suspect]
     Indication: DEPRESSION
     Route: 065
  2. ESCITALOPRAM [Suspect]
     Indication: DEPRESSION
     Route: 065
  3. FLUOXETINE HCL [Suspect]
     Indication: DEPRESSION
     Route: 065

REACTIONS (2)
  - EXTRAPYRAMIDAL DISORDER [None]
  - MULTIPLE SYSTEM ATROPHY [None]
